FAERS Safety Report 6228334-9 (Version None)
Quarter: 2009Q2

REPORT INFORMATION
  Report Type: 
  Country: None (occurrence: None)
  Receive Date: 20090612
  Receipt Date: 20090610
  Transmission Date: 20091009
  Serious: Yes (Hospitalization, Other)
  Sender: FDA-Public Use
  Company Number: US-PFIZER INC-2006099704

PATIENT
  Sex: Female
  Weight: 83 kg

DRUGS (11)
  1. SILDENAFIL CITRATE [Suspect]
     Indication: PULMONARY HYPERTENSION
     Dosage: 20 MG, 3X/DAY
     Route: 048
     Dates: start: 20050310, end: 20050407
  2. SILDENAFIL CITRATE [Suspect]
     Dosage: 40 MG, 3X/DAY
     Route: 048
     Dates: start: 20050408, end: 20050831
  3. SILDENAFIL CITRATE [Suspect]
     Dosage: 80 MG, 3X/DAY
     Route: 048
     Dates: start: 20050901, end: 20060720
  4. FLOLAN [Concomitant]
     Indication: PULMONARY HYPERTENSION
     Dosage: 43NG/KG/MIN CONTINUOUS
     Route: 042
     Dates: start: 20040301
  5. DIGOXIN [Concomitant]
     Dosage: UNK
     Route: 048
     Dates: start: 20040415
  6. WARFARIN SODIUM [Concomitant]
     Dosage: UNK
     Route: 048
     Dates: start: 20040201
  7. OXYGEN [Concomitant]
     Dosage: CANNULA
     Route: 055
     Dates: start: 20040901
  8. SYNTHROID [Concomitant]
     Dosage: UNK
     Route: 048
     Dates: start: 20040201
  9. TYLENOL (CAPLET) [Concomitant]
     Dosage: UNK
     Route: 048
     Dates: start: 20050101
  10. NEXIUM [Concomitant]
     Dosage: UNK
     Route: 048
     Dates: start: 20041201
  11. LASIX [Concomitant]
     Dosage: UNK
     Route: 048
     Dates: start: 20040415

REACTIONS (1)
  - CENTRAL LINE INFECTION [None]
